FAERS Safety Report 23675824 (Version 1)
Quarter: 2024Q1

REPORT INFORMATION
  Report Type: Spontaneous
  Country: CA (occurrence: CA)
  Receive Date: 20240327
  Receipt Date: 20240327
  Transmission Date: 20240410
  Serious: Yes (Other)
  Sender: FDA-Public Use
  Company Number: CA-BAYER-2024A034814

PATIENT
  Age: 64 Year
  Sex: Female

DRUGS (1)
  1. EYLEA [Suspect]
     Active Substance: AFLIBERCEPT
     Indication: Product used for unknown indication
     Dosage: UNK, 40 MG/ML
     Dates: start: 20230601

REACTIONS (5)
  - Eye haemorrhage [Unknown]
  - Eye pruritus [Recovering/Resolving]
  - Vitreous floaters [Not Recovered/Not Resolved]
  - Foreign body sensation in eyes [Unknown]
  - Vision blurred [Not Recovered/Not Resolved]

NARRATIVE: CASE EVENT DATE: 20240228
